FAERS Safety Report 4697113-6 (Version None)
Quarter: 2005Q2

REPORT INFORMATION
  Report Type: 
  Country: None (occurrence: None)
  Receive Date: 20050622
  Receipt Date: 20050531
  Transmission Date: 20051028
  Serious: Yes (Other)
  Sender: FDA-Public Use
  Company Number: US-ROCHE-407798

PATIENT
  Sex: Male

DRUGS (2)
  1. PEGASYS [Suspect]
     Dosage: STRENGTH: 180 MCG/0.5 ML, ROUTE: INJ.
     Route: 050
     Dates: start: 20050415
  2. COPEGUS [Suspect]
     Route: 048
     Dates: start: 20050415

REACTIONS (8)
  - ALCOHOL USE [None]
  - ANAEMIA [None]
  - CONTUSION [None]
  - FEELING ABNORMAL [None]
  - HYPOTENSION [None]
  - INCORRECT ROUTE OF DRUG ADMINISTRATION [None]
  - LOSS OF CONSCIOUSNESS [None]
  - SUBDURAL HAEMATOMA [None]
